FAERS Safety Report 8135994-4 (Version None)
Quarter: 2012Q1

REPORT INFORMATION
  Report Type: 
  Country: None (occurrence: None)
  Receive Date: 20120214
  Receipt Date: 20120207
  Transmission Date: 20120608
  Serious: Yes (Other)
  Sender: FDA-Public Use
  Company Number: US-BAYER-2011-045476

PATIENT
  Age: 15 Year
  Sex: Female
  Weight: 81.633 kg

DRUGS (6)
  1. TYLENOL W/ CODEINE [Concomitant]
     Dosage: UNK
     Route: 048
     Dates: start: 20060821
  2. TRILEPTAL [Concomitant]
     Route: 048
  3. YAZ [Suspect]
     Indication: ORAL CONTRACEPTION
     Dosage: UNK
     Dates: start: 20050901, end: 20080101
  4. PROMETHAZINE [Concomitant]
     Dosage: 25 MG, UNK
     Route: 048
     Dates: start: 20060822
  5. CLONIDINE [Concomitant]
     Route: 048
  6. LEXAPRO [Concomitant]
     Route: 048

REACTIONS (10)
  - INJURY [None]
  - PAIN [None]
  - FEAR [None]
  - DEEP VEIN THROMBOSIS [None]
  - CEREBROVASCULAR ACCIDENT [None]
  - PULMONARY EMBOLISM [None]
  - MYOCARDIAL INFARCTION [None]
  - GALLBLADDER DISORDER [None]
  - ANXIETY [None]
  - MENTAL DISORDER [None]
